FAERS Safety Report 9119728 (Version 1)
Quarter: 2013Q1

REPORT INFORMATION
  Report Type: Spontaneous
  Country: DK (occurrence: None)
  Receive Date: 20130130
  Receipt Date: 20130130
  Transmission Date: 20140127
  Serious: No
  Sender: FDA-Public Use
  Company Number: 2013MA000735

PATIENT
  Sex: Female

DRUGS (2)
  1. GABAPENTIN TABLETS, 800 MG (PUREPAC GABAPENTIN) [Suspect]
     Indication: PRODUCT USED FOR UNKNOWN INDICATION
     Dates: start: 2008
  2. SOBRIL [Concomitant]

REACTIONS (2)
  - Muscle spasticity [None]
  - Urinary tract infection [None]
